FAERS Safety Report 5176773-X (Version None)
Quarter: 2006Q4

REPORT INFORMATION
  Report Type: 
  Country: None (occurrence: None)
  Receive Date: 20061212
  Receipt Date: 20061212
  Transmission Date: 20070319
  Serious: Yes (Hospitalization)
  Sender: FDA-Public Use
  Company Number: None

PATIENT
  Age: 59 Year
  Sex: Female
  Weight: 122 kg

DRUGS (11)
  1. SODIUM PHOSPHATES [Suspect]
     Indication: COLONOSCOPY
     Dosage: ONE TIME DOSE PO
     Route: 048
  2. ASPIRIN [Concomitant]
  3. PLAVIX [Concomitant]
  4. LABETALOL HCL [Concomitant]
  5. LISINOPRIL [Concomitant]
  6. LASIX [Concomitant]
  7. IMDUR [Concomitant]
  8. VERAPAMIL [Concomitant]
  9. ZOCOR [Concomitant]
  10. PREVACID [Concomitant]
  11. METFORMIN HCL [Concomitant]

REACTIONS (2)
  - NEPHROCALCINOSIS [None]
  - RENAL FAILURE ACUTE [None]
